FAERS Safety Report 5458582-7 (Version None)
Quarter: 2007Q3

REPORT INFORMATION
  Report Type: 
  Country: None (occurrence: None)
  Receive Date: 20070919
  Receipt Date: 20070409
  Transmission Date: 20080115
  Serious: No
  Sender: FDA-Public Use
  Company Number: US-ASTRAZENECA-2007UW06954

PATIENT
  Sex: Male

DRUGS (4)
  1. SEROQUEL [Suspect]
     Indication: ANXIETY
     Dosage: 200 MG HS, 50 MG PRN
     Route: 048
  2. SEROQUEL [Suspect]
     Indication: PANIC DISORDER
     Dosage: 200 MG HS, 50 MG PRN
     Route: 048
  3. SEROQUEL [Suspect]
     Indication: SLEEP DISORDER
     Dosage: 200 MG HS, 50 MG PRN
     Route: 048
  4. REMERON [Concomitant]
     Route: 048

REACTIONS (1)
  - NEGATIVE THOUGHTS [None]
